FAERS Safety Report 7675581 (Version 2)
Quarter: 2012Q4

REPORT INFORMATION
  Report Type: 
  Country: US (occurrence: US)
  Receive Date: 20101119
  Receipt Date: 20120829
  Transmission Date: 20130627
  Serious: Yes (Death)
  Sender: FDA-Public Use
  Company Number: US-MYLANLABS-2010S1020609

PATIENT
  Age: 48 Year
  Sex: Female
  Weight: 77.11 kg

DRUGS (6)
  1. FENTANYL TRANSDERMAL SYSTEM [Suspect]
     Indication: PAIN
     Dosage: q3days
     Route: 062
     Dates: start: 20071031, end: 20080714
  2. FLUOXETINE [Suspect]
     Indication: DEPRESSION
     Route: 048
  3. POLYETHYLENE GLYCOL [Concomitant]
  4. BISACODYL [Concomitant]
  5. HYDROCODONE/APAP [Concomitant]
     Dosage: 10mg/325mg
  6. LYRICA [Concomitant]

REACTIONS (4)
  - Cardio-respiratory arrest [Fatal]
  - Toxicity to various agents [Fatal]
  - Hepatic steatosis [Fatal]
  - Overdose [None]
